FAERS Safety Report 4616166-4 (Version None)
Quarter: 2005Q1

REPORT INFORMATION
  Report Type: 
  Country: None (occurrence: None)
  Receive Date: 20050321
  Receipt Date: 20030910
  Transmission Date: 20050727
  Serious: No
  Sender: FDA-Public Use
  Company Number: 6053

PATIENT
  Age: 73 Year
  Sex: Male

DRUGS (1)
  1. AMIODARONE [Suspect]
     Indication: ATRIAL FIBRILLATION
     Dosage: 450 MG ONCE/800 MG/NI; IV
     Route: 042

REACTIONS (5)
  - ACUTE RESPIRATORY DISTRESS SYNDROME [None]
  - C-REACTIVE PROTEIN INCREASED [None]
  - DRUG HYPERSENSITIVITY [None]
  - LEUKOCYTOSIS [None]
  - PNEUMONITIS [None]
